FAERS Safety Report 18874252 (Version 2)
Quarter: 2021Q1

REPORT INFORMATION
  Report Type: Report from Study
  Country: CA (occurrence: CA)
  Receive Date: 20210210
  Receipt Date: 20210309
  Transmission Date: 20210420
  Serious: Yes (Other)
  Sender: FDA-Public Use
  Company Number: CA-TAKEDA-2020TUS030806

PATIENT
  Age: 57 Year
  Sex: Male

DRUGS (3)
  1. ACYCLOVIR                          /00587301/ [Concomitant]
     Active Substance: ACYCLOVIR
     Dosage: 400 MILLIGRAM, BID
     Route: 065
  2. PROCHLORPERAZINE. [Concomitant]
     Active Substance: PROCHLORPERAZINE
     Dosage: 10 MILLIGRAM
     Route: 065
  3. IXAZOMIB [Suspect]
     Active Substance: IXAZOMIB
     Indication: PLASMA CELL MYELOMA
     Dosage: 3 MILLIGRAM
     Route: 048
     Dates: start: 20181030

REACTIONS (11)
  - Dry skin [Unknown]
  - Hyperhidrosis [Recovering/Resolving]
  - Product dose omission issue [Unknown]
  - Syncope [Recovered/Resolved]
  - Arthralgia [Unknown]
  - Dizziness [Unknown]
  - Skin fissures [Unknown]
  - Dehydration [Unknown]
  - Constipation [Unknown]
  - Pruritus [Unknown]
  - Palpitations [Unknown]
